FAERS Safety Report 9667706 (Version 4)
Quarter: 2014Q1

REPORT INFORMATION
  Report Type: Spontaneous
  Country: US (occurrence: US)
  Receive Date: 20131104
  Receipt Date: 20140124
  Transmission Date: 20141002
  Serious: Yes (Other)
  Sender: FDA-Public Use
  Company Number: US-009507513-1310USA012561

PATIENT
  Sex: Female

DRUGS (5)
  1. REBETOL [Suspect]
     Indication: HEPATITIS C
     Dosage: UNK
     Route: 048
     Dates: start: 20050602, end: 20050804
  2. REBETOL [Suspect]
     Dosage: UNK
     Route: 048
     Dates: start: 20130709
  3. PEGASYS [Suspect]
     Indication: HEPATITIS C
     Dosage: UNK
     Route: 030
     Dates: start: 20050602, end: 20050804
  4. PEGASYS [Suspect]
     Dosage: UNK
     Dates: start: 20130709
  5. VICTRELIS [Suspect]
     Indication: HEPATITIS C
     Dosage: UNK
     Route: 048
     Dates: start: 20130807

REACTIONS (7)
  - Injection site abscess [Unknown]
  - Fibromyalgia [Unknown]
  - Injection site reaction [Unknown]
  - Rheumatoid arthritis [Unknown]
  - Pain [Unknown]
  - Rash [Unknown]
  - Skin disorder [Unknown]
